FAERS Safety Report 16482628 (Version 2)
Quarter: 2021Q2

REPORT INFORMATION
  Report Type: Spontaneous
  Country: US (occurrence: US)
  Receive Date: 20190627
  Receipt Date: 20210421
  Transmission Date: 20210716
  Serious: No
  Sender: FDA-Public Use
  Company Number: US-ELI_LILLY_AND_COMPANY-US201906004846

PATIENT
  Age: 53 Year
  Sex: Female

DRUGS (1)
  1. TALTZ [Suspect]
     Active Substance: IXEKIZUMAB
     Indication: PSORIASIS
     Dosage: 80 MG, UNKNOWN
     Route: 058
     Dates: start: 20190408

REACTIONS (5)
  - Head injury [Unknown]
  - Concussion [Unknown]
  - Road traffic accident [Unknown]
  - Amnesia [Unknown]
  - Sinusitis [Unknown]

NARRATIVE: CASE EVENT DATE: 20190610
